FAERS Safety Report 17454610 (Version 1)
Quarter: 2020Q1

REPORT INFORMATION
  Report Type: Report from Study
  Country: IE (occurrence: IE)
  Receive Date: 20200225
  Receipt Date: 20200225
  Transmission Date: 20200409
  Serious: Yes (Other)
  Sender: FDA-Public Use
  Company Number: IE-BRISTOL-MYERS SQUIBB COMPANY-BMS-2020-013523

PATIENT
  Sex: Female

DRUGS (1)
  1. ABATACEPT [Suspect]
     Active Substance: ABATACEPT
     Indication: RHEUMATOID ARTHRITIS
     Dosage: UNK
     Route: 065
     Dates: start: 20190822

REACTIONS (6)
  - Abdominal pain upper [Unknown]
  - Vomiting [Unknown]
  - Influenza [Unknown]
  - Haemoptysis [Unknown]
  - Chest pain [Unknown]
  - Limb mass [Unknown]
